FAERS Safety Report 4496906-8 (Version None)
Quarter: 2004Q4

REPORT INFORMATION
  Report Type: 
  Country: None (occurrence: None)
  Receive Date: 20040928
  Receipt Date: 20040602
  Transmission Date: 20050328
  Serious: No
  Sender: FDA-Public Use
  Company Number: 04P-163-0257932-00

PATIENT
  Age: 76 Year
  Sex: Female
  Weight: 47.6277 kg

DRUGS (8)
  1. HUMIRA [Suspect]
     Indication: RHEUMATOID ARTHRITIS
     Dosage: 40 MG, 1 IN 2 WK, SUBCUTANEOUS
     Route: 058
     Dates: start: 20040209, end: 20040313
  2. HUMIRA [Suspect]
     Indication: RHEUMATOID ARTHRITIS
     Dosage: 40 MG, 1 IN 2 WK, SUBCUTANEOUS
     Route: 058
     Dates: start: 20040518
  3. HEART MEDICATION [Concomitant]
  4. ZOCOR [Concomitant]
  5. LEVOTHYROXINE SODIUM [Concomitant]
  6. PARACETAMOL [Concomitant]
  7. PREDNISONE [Concomitant]
  8. ATENOLOL [Concomitant]

REACTIONS (1)
  - DIVERTICULITIS [None]
